FAERS Safety Report 19687856 (Version 1)
Quarter: 2021Q3

REPORT INFORMATION
  Report Type: Spontaneous
  Country: US (occurrence: US)
  Receive Date: 20210811
  Receipt Date: 20210811
  Transmission Date: 20211014
  Serious: No
  Sender: FDA-Public Use
  Company Number: US-PFIZER INC-2019475321

PATIENT
  Age: 80 Year
  Sex: Female
  Weight: 52.62 kg

DRUGS (2)
  1. BOSULIF [Suspect]
     Active Substance: BOSUTINIB MONOHYDRATE
     Indication: CHRONIC MYELOID LEUKAEMIA
     Dosage: 400 MG, DAILY (4 BY MOUTH DAILY)
     Route: 048
     Dates: start: 20180126
  2. BOSULIF [Suspect]
     Active Substance: BOSUTINIB MONOHYDRATE
     Dosage: 100 MG
     Dates: start: 20180208

REACTIONS (1)
  - Diarrhoea [Unknown]
